FAERS Safety Report 8789284 (Version 1)
Quarter: 2012Q4

REPORT INFORMATION
  Report Type: Spontaneous
  Country: US (occurrence: None)
  Receive Date: 20120904
  Receipt Date: 20120904
  Transmission Date: 20130627
  Serious: Yes (Hospitalization)
  Sender: FDA-Public Use
  Company Number: DSA_59101_2012

PATIENT
  Age: 79 Year
  Sex: Female
  Weight: 81.65 kg

DRUGS (5)
  1. CARDIZEM CD [Suspect]
     Indication: ATRIAL FIBRILLATION
     Route: 048
     Dates: end: 2007
  2. CARDIZEM CD [Suspect]
     Indication: ATRIAL FIBRILLATION
     Dosage: Every evening Oral
     Route: 048
     Dates: end: 2007
  3. COUMADIN [Concomitant]
  4. AMIODARONE [Concomitant]
  5. LORAZEPAM [Concomitant]

REACTIONS (3)
  - Heart rate increased [None]
  - Heart rate irregular [None]
  - Heart rate decreased [None]
